FAERS Safety Report 10239207 (Version 1)
Quarter: 2014Q1

REPORT INFORMATION
  Report Type: Spontaneous
  Country: US (occurrence: None)
  Receive Date: 20140306
  Receipt Date: 20140306
  Transmission Date: 20141002
  Serious: Yes (Life-Threatening, Hospitalization)
  Sender: FDA-Public Use
  Company Number: 163-21880-13041954

PATIENT
  Age: 63 Year
  Sex: Female

DRUGS (14)
  1. REVLIMID [Suspect]
     Indication: PLASMA CELL MYELOMA
     Route: 048
     Dates: start: 201110, end: 2012
  2. ONDANSETRON (ONDANSETRON) (TABLETS) [Concomitant]
  3. DEXAMETHASONE (DEXAMETHASONE) (TABLETS) [Concomitant]
  4. AMOXICILLIN (AMOXICILLIN) (CAPSULES) [Concomitant]
  5. LORAZEPAM (LORAZEPAM) (TABLETS) [Concomitant]
  6. CHERATUSSIN AC (CHERATUSSIN AC) (SYRUP) [Concomitant]
  7. TAMIFLU (OSELTAMIVIR) (CAPSULES) [Concomitant]
  8. CITRACAL + D3 (CITRACAL + D) (TABLETS) [Concomitant]
  9. MEGESTROL ACETATE (MEGESTROL ACETATE) (TABLETS) [Concomitant]
  10. CENTRUM (CENTRUM) (TABLETS) [Concomitant]
  11. CEPHALEXIN (CEFALEXIN) (CAPSULES) [Concomitant]
  12. LOPERAMIDE (LOPEERAMIDE) (CAPSULES) [Concomitant]
  13. ACYCLOVIR (ACICLOVIR) (TABLETS) [Concomitant]
  14. RIFAMPIN (RIFAMPICIN) (CAPSULES) [Concomitant]

REACTIONS (2)
  - Pneumonia [None]
  - Neutropenia [None]
